FAERS Safety Report 17807033 (Version 2)
Quarter: 2020Q2

REPORT INFORMATION
  Report Type: Report from Study
  Country: DE (occurrence: DE)
  Receive Date: 20200520
  Receipt Date: 20200604
  Transmission Date: 20200714
  Serious: Yes (Other)
  Sender: FDA-Public Use
  Company Number: DE-VERTEX PHARMACEUTICALS-2020-010007

PATIENT
  Sex: Male
  Weight: 57 kg

DRUGS (17)
  1. ELEXACAFTOR/TEZACAFTOR/IVACAFTOR AND IVACAFTOR [Suspect]
     Active Substance: ELEXACAFTOR\IVACAFTOR\TEZACAFTOR
     Indication: CYSTIC FIBROSIS
     Dosage: 2 TAB AM, 1 TAB PM
     Route: 048
     Dates: start: 20200413, end: 2020
  2. SPIRIVA [Concomitant]
     Active Substance: TIOTROPIUM BROMIDE MONOHYDRATE
     Dosage: 2 IN AM
  3. VITAMIN D2 + CALCIUM [CALCIUM GLUCONATE;ERGOCALCIFEROL] [Concomitant]
     Dosage: UNK, QD
     Route: 048
  4. PULMOZYME [Concomitant]
     Active Substance: DORNASE ALFA
     Dosage: 1 UNK, QD
  5. KREON [Concomitant]
     Active Substance: PANCRELIPASE
     Dosage: 25000 BEFORE BED
     Route: 048
  6. VITAMIN D [COLECALCIFEROL] [Concomitant]
     Active Substance: CHOLECALCIFEROL
     Dosage: 1 UNK, QD
     Route: 048
  7. ELEXACAFTOR/TEZACAFTOR/IVACAFTOR AND IVACAFTOR [Suspect]
     Active Substance: ELEXACAFTOR\IVACAFTOR\TEZACAFTOR
     Dosage: 2 TAB AM, 1 TAB PM
     Route: 048
     Dates: start: 202005
  8. UDC [Concomitant]
     Dosage: 400, BID
     Route: 048
  9. MAGNESIUM [Concomitant]
     Active Substance: MAGNESIUM
     Dosage: UNK
     Route: 048
  10. THEOPHYLLIN [Concomitant]
     Active Substance: THEOPHYLLINE ANHYDROUS
     Dosage: 250, BID
     Route: 048
  11. VIANI [Concomitant]
     Active Substance: FLUTICASONE PROPIONATE\SALMETEROL XINAFOATE
     Dosage: 125/25 2 IN AM, 2 IN PM
  12. ANGOCIN [ARMORACIA RUSTICANA;TROPAEOLUM MAJUS] [Concomitant]
     Dosage: UNK
     Route: 048
  13. NACL [Concomitant]
     Active Substance: SODIUM CHLORIDE
     Dosage: UNK
  14. SULTANOL [Concomitant]
     Active Substance: ALBUTEROL SULFATE
     Dosage: UNK UNK, BID
  15. ELEXACAFTOR/TEZACAFTOR/IVACAFTOR AND IVACAFTOR [Suspect]
     Active Substance: ELEXACAFTOR\IVACAFTOR\TEZACAFTOR
     Dosage: 2 TAB AM
     Route: 048
     Dates: start: 20200424, end: 20200512
  16. QUINSAIR [Concomitant]
     Dosage: UNK, BID; ALTERNATING WITH COLISTIN EVERY 4 WEEKS
  17. ADEK [Concomitant]
     Dosage: 1 IN AM
     Route: 048

REACTIONS (3)
  - Infective pulmonary exacerbation of cystic fibrosis [Recovered/Resolved]
  - Blood bilirubin increased [Recovered/Resolved]
  - Blood pressure increased [Recovered/Resolved]

NARRATIVE: CASE EVENT DATE: 20200414
